FAERS Safety Report 10967935 (Version 1)
Quarter: 2015Q1

REPORT INFORMATION
  Report Type: Spontaneous
  Country: US (occurrence: US)
  Receive Date: 20150330
  Receipt Date: 20150330
  Transmission Date: 20150721
  Serious: No
  Sender: FDA-Public Use
  Company Number: US-ASTRAZENECA-2014SE07229

PATIENT
  Age: 92 Year
  Sex: Female
  Weight: 60.3 kg

DRUGS (1)
  1. NEXIUM [Suspect]
     Active Substance: ESOMEPRAZOLE MAGNESIUM
     Indication: DYSPEPSIA
     Route: 048
     Dates: start: 201401, end: 201401

REACTIONS (4)
  - Dyspepsia [Unknown]
  - Intentional product misuse [Unknown]
  - Drug dose omission [Unknown]
  - Chest pain [Unknown]
